FAERS Safety Report 23771275 (Version 1)
Quarter: 2024Q2

REPORT INFORMATION
  Report Type: Report from Study
  Country: SA (occurrence: SA)
  Receive Date: 20240423
  Receipt Date: 20240423
  Transmission Date: 20240715
  Serious: Yes (Other)
  Sender: FDA-Public Use
  Company Number: SA-GLAXOSMITHKLINE-SA2023EME010885

PATIENT

DRUGS (1)
  1. BELIMUMAB [Suspect]
     Active Substance: BELIMUMAB
     Indication: Systemic lupus erythematosus
     Dosage: 200 MG, WE
     Dates: start: 20220707

REACTIONS (15)
  - Hip arthroplasty [Unknown]
  - Coma [Recovered/Resolved]
  - Systemic lupus erythematosus [Recovered/Resolved]
  - Rash [Unknown]
  - Purpura [Unknown]
  - Pain in extremity [Recovered/Resolved]
  - Tendonitis [Unknown]
  - Arthralgia [Unknown]
  - Peripheral swelling [Unknown]
  - Cough [Unknown]
  - Vomiting [Unknown]
  - Pyrexia [Recovered/Resolved]
  - Mobility decreased [Unknown]
  - Condition aggravated [Unknown]
  - Product dose omission issue [Unknown]

NARRATIVE: CASE EVENT DATE: 20230120
